FAERS Safety Report 24627454 (Version 4)
Quarter: 2025Q1

REPORT INFORMATION
  Report Type: Spontaneous
  Country: CA (occurrence: CA)
  Receive Date: 20241116
  Receipt Date: 20250315
  Transmission Date: 20250408
  Serious: Yes (Other)
  Sender: TAKEDA
  Company Number: CA-TAKEDA-2024TUS114024

PATIENT
  Age: 55 Year
  Sex: Female

DRUGS (3)
  1. ENTYVIO [Suspect]
     Active Substance: VEDOLIZUMAB
     Indication: Colitis ulcerative
  2. ENTYVIO [Suspect]
     Active Substance: VEDOLIZUMAB
  3. ENTYVIO [Suspect]
     Active Substance: VEDOLIZUMAB

REACTIONS (11)
  - Colitis ulcerative [Recovered/Resolved]
  - Haemorrhoids [Recovered/Resolved]
  - COVID-19 [Unknown]
  - Inappropriate schedule of product administration [Recovered/Resolved]
  - Frequent bowel movements [Unknown]
  - Defaecation urgency [Unknown]
  - Mucous stools [Unknown]
  - Abdominal discomfort [Unknown]
  - Gastrointestinal sounds abnormal [Unknown]
  - Flatulence [Unknown]
  - Fatigue [Recovered/Resolved]

NARRATIVE: CASE EVENT DATE: 20241001
